FAERS Safety Report 15797858 (Version 1)
Quarter: 2019Q1

REPORT INFORMATION
  Report Type: Spontaneous
  Country: US (occurrence: US)
  Receive Date: 20190104
  Receipt Date: 20190104
  Transmission Date: 20190417
  Serious: No
  Sender: FDA-Public Use
  Company Number: None

PATIENT

DRUGS (1)
  1. BENLYSTA [Suspect]
     Active Substance: BELIMUMAB
     Dosage: OTHER FREQUENCY
     Route: 058

REACTIONS (3)
  - Product dose omission [None]
  - Arthralgia [None]
  - Treatment noncompliance [None]

NARRATIVE: CASE EVENT DATE: 20181231
